FAERS Safety Report 4830262-8 (Version None)
Quarter: 2005Q4

REPORT INFORMATION
  Report Type: 
  Country: None (occurrence: None)
  Receive Date: 20051117
  Receipt Date: 20051115
  Transmission Date: 20060501
  Serious: Yes (Hospitalization)
  Sender: FDA-Public Use
  Company Number: TR-GLAXOSMITHKLINE-B0400592A

PATIENT
  Age: 23 Year
  Sex: Female
  Weight: 68 kg

DRUGS (2)
  1. AVANDIA [Suspect]
     Dosage: 4MG SEE DOSAGE TEXT
     Route: 048
     Dates: start: 20051025, end: 20051025
  2. GLUCOTROL [Concomitant]
     Route: 048
     Dates: start: 20051025, end: 20051025

REACTIONS (4)
  - HYPOGLYCAEMIA [None]
  - HYPOTENSION [None]
  - OEDEMA [None]
  - OVERDOSE [None]
